FAERS Safety Report 5019941-X (Version None)
Quarter: 2006Q2

REPORT INFORMATION
  Report Type: 
  Country: None (occurrence: None)
  Receive Date: 20060607
  Receipt Date: 20060531
  Transmission Date: 20061013
  Serious: Yes (Hospitalization)
  Sender: FDA-Public Use
  Company Number: 2006AP02449

PATIENT
  Age: 27455 Day
  Sex: Male
  Weight: 83 kg

DRUGS (4)
  1. NEXIUM [Suspect]
     Indication: OESOPHAGEAL DISORDER
     Route: 048
     Dates: end: 20060123
  2. FOSINOPRIL SODIUM [Suspect]
     Indication: ESSENTIAL HYPERTENSION
     Route: 048
     Dates: end: 20060123
  3. CALTRATE [Concomitant]
     Indication: HYPOVITAMINOSIS
     Route: 048
  4. GLUCOSAMINE NOS [Concomitant]
     Indication: OSTEOARTHRITIS

REACTIONS (2)
  - BLOOD CREATININE INCREASED [None]
  - NEPHRITIS INTERSTITIAL [None]
